FAERS Safety Report 10419937 (Version 2)
Quarter: 2014Q3

REPORT INFORMATION
  Report Type: Spontaneous
  Country: US (occurrence: None)
  Receive Date: 20140828
  Receipt Date: 20140919
  Transmission Date: 20150326
  Serious: Yes (Hospitalization)
  Sender: FDA-Public Use
  Company Number: 2014STPI000394

PATIENT
  Age: 28 Year
  Sex: Male
  Weight: 67.9 kg

DRUGS (29)
  1. SOLU-CORTEF [Suspect]
     Active Substance: HYDROCORTISONE SODIUM SUCCINATE
     Indication: ACUTE LYMPHOCYTIC LEUKAEMIA
     Route: 037
     Dates: start: 20140603, end: 20140603
  2. PANTOPRAZOLE SODIUM (PANTOPRAZOLE SODIUM SESQUIHYDRATE) [Concomitant]
  3. SENNA (SENNOSIDE A+B) [Concomitant]
  4. VINCRISTINE SULFATE (VINCRISTINE SULFATE) [Suspect]
     Active Substance: VINCRISTINE SULFATE
     Indication: ACUTE LYMPHOCYTIC LEUKAEMIA
     Dosage: 2 MG, X2, INTRAVENOUS
     Route: 042
     Dates: start: 20140603, end: 20140603
  5. MICAFUNGIN SODIUM (MICAFUNGIN SODIUM) [Concomitant]
  6. SULFAMETHOXAZOLE AND TRIMETHOPRIM (SULFAMETHOXAZOLE, TRIMETHOPRIM) [Concomitant]
  7. CYTARABINE (CYTARABINE) [Suspect]
     Active Substance: CYTARABINE
     Indication: ACUTE LYMPHOCYTIC LEUKAEMIA
     Route: 042
     Dates: start: 20140603, end: 20140606
  8. CYCLOPHOSPHAMIDE (CYCLOPHOSPHAMIDE) [Suspect]
     Active Substance: CYCLOPHOSPHAMIDE
     Indication: ACUTE LYMPHOCYTIC LEUKAEMIA
     Route: 042
     Dates: start: 20140603, end: 20140603
  9. DOXYLAMINE (DOXYLAMINE SUCCINATE) [Concomitant]
  10. PREDNISONE (PREDNISONE) [Suspect]
     Active Substance: PREDNISONE
     Indication: ACUTE LYMPHOCYTIC LEUKAEMIA
     Dates: start: 20140715, end: 20140722
  11. FILGRASTIM (FILGRASTIM) [Concomitant]
     Active Substance: FILGRASTIM
  12. POTASSIUM CHLORIDE (POTASSIUM CHLORIDE) [Concomitant]
     Active Substance: POTASSIUM CHLORIDE
  13. LORAZEPAM (LORAZEPAM) [Concomitant]
     Active Substance: LORAZEPAM
  14. CAPSAICIN (CAPSAICIN) [Concomitant]
  15. IBUPROFEN (IBUPROFEN) [Concomitant]
     Active Substance: IBUPROFEN
  16. MIRALAX (MACROGOL 3350) [Concomitant]
  17. MUPIROCIN (MUPIROCIN) [Concomitant]
     Active Substance: MUPIROCIN
  18. ONCASPAR [Suspect]
     Active Substance: PEGASPARGASE
     Indication: ACUTE LYMPHOCYTIC LEUKAEMIA
     Route: 042
     Dates: start: 20140512, end: 20140512
  19. MERCAPTOPURINE (MERCAPTOPURINE) [Suspect]
     Active Substance: MERCAPTOPURINE
     Indication: ACUTE LYMPHOCYTIC LEUKAEMIA
     Route: 048
     Dates: start: 20140603, end: 20140616
  20. HYDROCORTISONE (HYDROCORTISONE) [Concomitant]
     Active Substance: HYDROCORTISONE
  21. ALLOPURINOL (ALLOPURINOL) [Concomitant]
     Active Substance: ALLOPURINOL
  22. ACYCLOVIR (ACYCLOVIR) [Concomitant]
     Active Substance: ACYCLOVIR
  23. FLECTOR (DICLOFENAC SODIUM) [Concomitant]
  24. FLUTICASONE PROPIONATE (FLUTICASONE PROPIONATE) (FLUTICASONE PROPIONATE) [Concomitant]
     Active Substance: FLUTICASONE PROPIONATE
  25. PROCHLORPERAZINE (PROCHLORPERAZINE MALEATE) [Concomitant]
  26. METHOTREXATE SODIUM (METHOTREXATE SODIUM) [Suspect]
     Active Substance: METHOTREXATE SODIUM
     Indication: ACUTE LYMPHOCYTIC LEUKAEMIA
     Route: 037
     Dates: start: 20140505, end: 20140603
  27. ONDANSETRON. [Concomitant]
     Active Substance: ONDANSETRON
  28. OXYCODONE  (OXYCODONE HYDROCHLORIDE) [Concomitant]
  29. ACETAMINOPHEN (ACETAMINOPHEN) [Concomitant]
     Active Substance: ACETAMINOPHEN

REACTIONS (4)
  - Peripheral sensory neuropathy [None]
  - Pneumothorax [None]
  - Thrombocytopenia [None]
  - Febrile neutropenia [None]

NARRATIVE: CASE EVENT DATE: 20140818
